FAERS Safety Report 18798699 (Version 7)
Quarter: 2022Q2

REPORT INFORMATION
  Report Type: Spontaneous
  Country: JP (occurrence: JP)
  Receive Date: 20210128
  Receipt Date: 20220624
  Transmission Date: 20220721
  Serious: Yes (Death, Life-Threatening, Hospitalization, Other)
  Sender: FDA-Public Use
  Company Number: JP-VIIVHC-JP2021JPN017488AA

PATIENT

DRUGS (54)
  1. TIVICAY [Suspect]
     Active Substance: DOLUTEGRAVIR SODIUM
     Indication: HIV infection
     Dosage: 50 MG, QD
     Route: 048
     Dates: start: 20200526, end: 20210129
  2. ATOVAQUONE [Suspect]
     Active Substance: ATOVAQUONE
     Indication: Antifungal prophylaxis
     Dosage: 1500 MG, QD
     Route: 048
     Dates: start: 20200526
  3. ATOVAQUONE [Suspect]
     Active Substance: ATOVAQUONE
     Indication: Cerebral toxoplasmosis
  4. DESCOVY [Concomitant]
     Active Substance: EMTRICITABINE\TENOFOVIR ALAFENAMIDE FUMARATE
     Indication: HIV infection
     Dosage: 1 DF, QD
     Dates: start: 20200526, end: 20210129
  5. CLINDAMYCIN [Concomitant]
     Active Substance: CLINDAMYCIN
     Indication: Toxoplasmosis
  6. VONOPRAZAN FUMARATE [Concomitant]
     Active Substance: VONOPRAZAN FUMARATE
     Indication: Toxoplasmosis
     Dosage: 10 MG, QD
     Dates: start: 20200530, end: 20210130
  7. VONOPRAZAN FUMARATE [Concomitant]
     Active Substance: VONOPRAZAN FUMARATE
     Indication: Gastritis
  8. CLINDAMYCIN [Concomitant]
     Active Substance: CLINDAMYCIN
     Indication: Cerebral toxoplasmosis
     Dosage: 600 MG, TID
     Dates: start: 20200526, end: 20210129
  9. GANCICLOVIR [Concomitant]
     Active Substance: GANCICLOVIR
     Dosage: UNK
     Dates: start: 20210226, end: 20210318
  10. CALONAL [Concomitant]
     Active Substance: ACETAMINOPHEN
     Dosage: UNK
  11. LEUCOVORIN [Concomitant]
     Active Substance: LEUCOVORIN
     Dosage: UNK
  12. LOXOPROFEN SODIUM DIHYDRATE [Concomitant]
     Active Substance: LOXOPROFEN SODIUM DIHYDRATE
     Dosage: UNK
  13. TRAMAL OD TABLETS [Concomitant]
     Dosage: UNK
  14. METOCLOPRAMIDE [Concomitant]
     Active Substance: METOCLOPRAMIDE
     Dosage: UNK
  15. LANSOPRAZOLE-OD TABLETS [Concomitant]
     Dosage: UNK
  16. LUNESTA TABLETS [Concomitant]
     Dosage: UNK
  17. LEVOFLOXACIN [Concomitant]
     Active Substance: LEVOFLOXACIN
     Dosage: UNK
  18. FAMOTIDINE [Concomitant]
     Active Substance: FAMOTIDINE
     Dosage: UNK
  19. DEXTROSE\SODIUM CHLORIDE\SODIUM LACTATE [Concomitant]
     Active Substance: DEXTROSE\SODIUM CHLORIDE\SODIUM LACTATE
     Dosage: UNK
  20. LEVOFLOXACIN INTRAVENOUS INFUSION [Concomitant]
     Dosage: UNK
  21. CALCIUM CHLORIDE\MALTOSE\POTASSIUM CHLORIDE\SODIUM CHLORIDE\SODIUM LAC [Concomitant]
     Active Substance: CALCIUM CHLORIDE\MALTOSE\POTASSIUM CHLORIDE\SODIUM CHLORIDE\SODIUM LACTATE
     Dosage: UNK
  22. PREDNISOLONE SODIUM SUCCINATE [Concomitant]
     Active Substance: PREDNISOLONE SODIUM SUCCINATE
     Dosage: UNK
  23. ISOTONIC SODIUM CHLORIDE SOLUTION [Concomitant]
     Active Substance: SODIUM CHLORIDE
     Dosage: UNK
  24. ACETAMINOPHEN [Concomitant]
     Active Substance: ACETAMINOPHEN
     Dosage: UNK
  25. METOCLOPRAMIDE [Concomitant]
     Active Substance: METOCLOPRAMIDE
     Dosage: UNK
  26. DEXTROSE [Concomitant]
     Active Substance: DEXTROSE
     Dosage: UNK
  27. CYANOCOBALAMIN\PYRIDOXINE HYDROCHLORIDE\THIAMINE [Concomitant]
     Active Substance: CYANOCOBALAMIN\PYRIDOXINE HYDROCHLORIDE\THIAMINE
     Dosage: UNK
  28. DIAZEPAM [Concomitant]
     Active Substance: DIAZEPAM
     Dosage: UNK
  29. HAPTOGLOBIN [Concomitant]
     Dosage: UNK
  30. MEROPENEM [Concomitant]
     Active Substance: MEROPENEM
     Dosage: UNK
  31. MEYLON [Concomitant]
     Active Substance: SODIUM BICARBONATE
     Dosage: UNK
  32. SODIUM CHLORIDE [Concomitant]
     Active Substance: SODIUM CHLORIDE
     Dosage: UNK
  33. KCL INJECTION [Concomitant]
     Dosage: UNK
  34. ROCURONIUM BROMIDE [Concomitant]
     Active Substance: ROCURONIUM BROMIDE
     Dosage: UNK
  35. FENTANYL [Concomitant]
     Active Substance: FENTANYL
     Dosage: UNK
  36. MENATETRENONE [Concomitant]
     Active Substance: MENATETRENONE
     Dosage: UNK
  37. CALCIUM GLUCONATE [Concomitant]
     Active Substance: CALCIUM GLUCONATE
     Dosage: UNK
  38. NAFAMOSTAT MESYLATE [Concomitant]
     Active Substance: NAFAMOSTAT MESYLATE
     Dosage: UNK
  39. PROPOFOL [Concomitant]
     Active Substance: PROPOFOL
     Dosage: UNK
  40. MIDAZOLAM [Concomitant]
     Active Substance: MIDAZOLAM
     Dosage: UNK
  41. GASTER [Concomitant]
     Active Substance: FAMOTIDINE
     Dosage: UNK
  42. KENKETSU GLOVENIN-I-NICHIYAKU [Concomitant]
     Dosage: UNK
  43. AMINO ACIDS\DEXTROSE\ELECTROLYTES NOS\MINERALS\VITAMINS [Concomitant]
     Active Substance: AMINO ACIDS\DEXTROSE\ELECTROLYTES NOS\MINERALS\VITAMINS
     Dosage: UNK
  44. NOR-ADRENALIN [Concomitant]
     Dosage: UNK
  45. HEPARIN [Concomitant]
     Active Substance: HEPARIN SODIUM
     Dosage: UNK
  46. AMINO ACIDS\ELECTROLYTES NOS [Concomitant]
     Active Substance: AMINO ACIDS\ELECTROLYTES NOS
     Dosage: UNK
  47. VOLVIX [Concomitant]
     Dosage: UNK
  48. VITAMINS [Concomitant]
     Active Substance: VITAMINS
     Dosage: UNK
  49. FUROSEMIDE [Concomitant]
     Active Substance: FUROSEMIDE
     Dosage: UNK
  50. SODIUM PHOSPHATE CORRECTIVE INJECTION [Concomitant]
     Dosage: UNK
  51. NOVOLIN R [Concomitant]
     Active Substance: INSULIN HUMAN
     Dosage: UNK
  52. VANCOMYCIN HYDROCHLORIDE [Concomitant]
     Active Substance: VANCOMYCIN HYDROCHLORIDE
     Dosage: UNK
  53. MICAFUNGIN SODIUM [Concomitant]
     Active Substance: MICAFUNGIN SODIUM
     Dosage: UNK
  54. PANTETHINE [Concomitant]
     Active Substance: PANTETHINE
     Dosage: UNK

REACTIONS (17)
  - Autoimmune haemolytic anaemia [Not Recovered/Not Resolved]
  - Haemophagocytic lymphohistiocytosis [Recovered/Resolved]
  - Pyrexia [Recovered/Resolved]
  - Malaise [Recovering/Resolving]
  - Depressed level of consciousness [Recovered/Resolved]
  - Liver disorder [Recovered/Resolved]
  - Nausea [Recovered/Resolved]
  - Jaundice [Recovered/Resolved]
  - Decreased appetite [Recovered/Resolved]
  - Hyperbilirubinaemia [Recovered/Resolved]
  - Renal impairment [Recovering/Resolving]
  - Epstein-Barr virus infection [Recovered/Resolved]
  - Lymphoma [Fatal]
  - Cytomegalovirus infection [Recovered/Resolved]
  - Acquired immunodeficiency syndrome [Fatal]
  - Product use in unapproved indication [Unknown]
  - Off label use [Unknown]

NARRATIVE: CASE EVENT DATE: 20210112
